FAERS Safety Report 4333652-5 (Version None)
Quarter: 2004Q2

REPORT INFORMATION
  Report Type: 
  Country: None (occurrence: None)
  Receive Date: 20040406
  Receipt Date: 20040406
  Transmission Date: 20050107
  Serious: Yes (Hospitalization)
  Sender: FDA-Public Use
  Company Number: None

PATIENT
  Sex: Male
  Weight: 92.7 kg

DRUGS (8)
  1. EMCYT [Suspect]
     Indication: PROSTATE CANCER
     Dosage: 280 MG PO TID X 14 D Q21 D
     Route: 048
     Dates: start: 20030121, end: 20030316
  2. EPOGEN [Concomitant]
  3. IRON SUPPLEMENTS [Concomitant]
  4. ZOFRAN [Concomitant]
  5. BENEDRYL [Concomitant]
  6. PEPCID [Concomitant]
  7. CEFZIL [Concomitant]
  8. COMPAZINE [Concomitant]

REACTIONS (1)
  - PULMONARY EMBOLISM [None]
